FAERS Safety Report 12837802 (Version 1)
Quarter: 2016Q4

REPORT INFORMATION
  Report Type: Spontaneous
  Country: US (occurrence: US)
  Receive Date: 20161012
  Receipt Date: 20161012
  Transmission Date: 20170207
  Serious: No
  Sender: FDA-Public Use
  Company Number: US-009507513-1609USA012257

PATIENT

DRUGS (2)
  1. PRINIVIL [Suspect]
     Active Substance: LISINOPRIL
     Indication: HYPERTENSION
  2. PRINIVIL [Suspect]
     Active Substance: LISINOPRIL
     Indication: LIVER DISORDER
     Dosage: 1 (2.5 MG), DAILY
     Route: 048

REACTIONS (3)
  - Headache [Unknown]
  - Fatigue [Unknown]
  - Dizziness [Unknown]
